FAERS Safety Report 10142461 (Version 1)
Quarter: 2014Q2

REPORT INFORMATION
  Report Type: Spontaneous
  Country: US (occurrence: US)
  Receive Date: 20140430
  Receipt Date: 20140430
  Transmission Date: 20141212
  Serious: Yes (Hospitalization)
  Sender: FDA-Public Use
  Company Number: US-BIOGENIDEC-2014BI037768

PATIENT
  Age: 48 Year
  Sex: Female

DRUGS (1)
  1. TECFIDERA [Suspect]
     Indication: MULTIPLE SCLEROSIS
     Route: 048
     Dates: end: 20140213

REACTIONS (5)
  - Renal failure [Recovered/Resolved]
  - Cardiac arrest [Recovered/Resolved]
  - Abdominal pain upper [Recovered/Resolved]
  - Infection [Unknown]
  - Multiple sclerosis relapse [Unknown]
